FAERS Safety Report 6045156-2 (Version None)
Quarter: 2009Q1

REPORT INFORMATION
  Report Type: 
  Country: None (occurrence: None)
  Receive Date: 20090121
  Receipt Date: 20090115
  Transmission Date: 20090719
  Serious: Yes (Hospitalization)
  Sender: FDA-Public Use
  Company Number: FR-ASTRAZENECA-2009CG00187

PATIENT
  Age: 14060 Day
  Sex: Female

DRUGS (1)
  1. NEXIUM [Suspect]
     Route: 048
     Dates: start: 20081129, end: 20081216

REACTIONS (4)
  - EOSINOPHILIA [None]
  - ERYTHEMA [None]
  - PRURITUS [None]
  - PYREXIA [None]
